FAERS Safety Report 18540375 (Version 1)
Quarter: 2020Q4

REPORT INFORMATION
  Report Type: Spontaneous
  Country: US (occurrence: US)
  Receive Date: 20201124
  Receipt Date: 20201124
  Transmission Date: 20210114
  Serious: Yes (Hospitalization, Other)
  Sender: FDA-Public Use
  Company Number: US-PFIZER INC-2020458030

PATIENT
  Age: 76 Year
  Sex: Male
  Weight: 93.44 kg

DRUGS (9)
  1. ELIQUIS [Concomitant]
     Active Substance: APIXABAN
     Indication: ANTICOAGULANT THERAPY
     Dosage: UNK, 2X/DAY (TAKEN TWICE DAILY, FURTHER DOSE DETAILS UNKNOWN.)
  2. L-THYROXINE [LEVOTHYROXINE SODIUM] [Concomitant]
     Active Substance: LEVOTHYROXINE SODIUM
     Indication: THYROID DISORDER
     Dosage: 125 UG, 1X/DAY
  3. AMIODARONE [Concomitant]
     Active Substance: AMIODARONE
     Indication: CARDIAC DISORDER
     Dosage: 200 MG, DAILY
  4. VYNDAMAX [Suspect]
     Active Substance: TAFAMIDIS
     Dosage: UNK, DAILY (UNKNOWN STRENGTH-4 BIG TABLETS TAKEN DAILY )
  5. ATORVASTATIN [Concomitant]
     Active Substance: ATORVASTATIN
     Indication: CARDIAC DISORDER
     Dosage: 40 MG, DAILY
  6. VYNDAMAX [Suspect]
     Active Substance: TAFAMIDIS
     Indication: AMYLOIDOSIS
     Dosage: 61 MG, DAILY
     Dates: start: 201906
  7. FUROSEMIDE. [Concomitant]
     Active Substance: FUROSEMIDE
     Indication: CARDIAC DISORDER
     Dosage: 120 MG, DAILY  (3-40MG TABLETS DAILY MOST RECENT DOSING SHE IS AWARE OF)
  8. POTASSIUM CL ER [Concomitant]
     Active Substance: POTASSIUM CHLORIDE
     Indication: CARDIAC DISORDER
     Dosage: UNK, WEEKLY  (20MEQ ER TABLETS-DOSE DETERMINED BY BLOODWORK DONE WEEKLY: USUALLY 2-4)
  9. METOLAZONE. [Concomitant]
     Active Substance: METOLAZONE
     Indication: POLYURIA
     Dosage: UNK, AS NEEDED (TAKEN ONLY AS NEEDED;PROBABLY NOT TAKEN MORE THAN 10-15 TIMES WHOLE TIME HE HAS BEEN

REACTIONS (4)
  - Cardiac disorder [Not Recovered/Not Resolved]
  - Cardiac failure congestive [Not Recovered/Not Resolved]
  - Off label use [Unknown]
  - Product use in unapproved indication [Unknown]
